FAERS Safety Report 20194170 (Version 1)
Quarter: 2021Q4

REPORT INFORMATION
  Report Type: Spontaneous
  Country: US (occurrence: None)
  Receive Date: 20211215
  Receipt Date: 20211215
  Transmission Date: 20220304
  Serious: No
  Sender: FDA-Public Use
  Company Number: None

PATIENT
  Age: 21 Year
  Sex: Female
  Weight: 142.88 kg

DRUGS (4)
  1. NEXPLANON [Suspect]
     Active Substance: ETONOGESTREL
     Dates: start: 20190318, end: 20211209
  2. WELLBUTRIN XL [Concomitant]
  3. CYMBALTA [Concomitant]
     Active Substance: DULOXETINE HYDROCHLORIDE
  4. CANNABIS SATIVA SUBSP. INDICA TOP [Concomitant]
     Active Substance: CANNABIS SATIVA SUBSP. INDICA TOP

REACTIONS (10)
  - Contraceptive implant [None]
  - Weight increased [None]
  - Intermenstrual bleeding [None]
  - Depression [None]
  - Anxiety [None]
  - Anger [None]
  - Hormone level abnormal [None]
  - Implant site pain [None]
  - Device physical property issue [None]
  - Quality of life decreased [None]

NARRATIVE: CASE EVENT DATE: 20190329
